FAERS Safety Report 24769577 (Version 1)
Quarter: 2024Q4

REPORT INFORMATION
  Report Type: Report from Study
  Country: US (occurrence: US)
  Receive Date: 20241224
  Receipt Date: 20241224
  Transmission Date: 20250114
  Serious: Yes (Other)
  Sender: BAUSCH AND LOMB
  Company Number: US-BAUSCHBL-2024BNL039220

PATIENT
  Age: 73 Year
  Sex: Female

DRUGS (1)
  1. XIIDRA [Suspect]
     Active Substance: LIFITEGRAST
     Indication: Dry eye
     Dosage: INSTILL 1 DROP INTO EACH EYE TWICE A DAY
     Route: 047

REACTIONS (3)
  - Blindness [Unknown]
  - Eye irritation [Unknown]
  - Vision blurred [Unknown]
